FAERS Safety Report 17711921 (Version 1)
Quarter: 2020Q2

REPORT INFORMATION
  Report Type: Spontaneous
  Country: DE (occurrence: DE)
  Receive Date: 20200427
  Receipt Date: 20200427
  Transmission Date: 20200714
  Serious: Yes (Hospitalization)
  Sender: FDA-Public Use
  Company Number: DE-PFIZER INC-2020163020

PATIENT
  Age: 56 Year
  Sex: Female

DRUGS (15)
  1. ACETYLSALICYLIC ACID [Concomitant]
     Active Substance: ASPIRIN
     Dosage: 100 MG, CYCLIC ( 0-1-0-0)
  2. METAMIZOLE [Concomitant]
     Active Substance: METAMIZOLE
     Dosage: 500 MG, 4X/DAY
  3. RAMIPRIL. [Concomitant]
     Active Substance: RAMIPRIL
     Dosage: 5 MG, CYCLIC (0-0-1-0 )
  4. PANTOPRAZOLE [Concomitant]
     Active Substance: PANTOPRAZOLE
     Dosage: 40 MG, CYCLIC (1-0-0-0)
  5. PHENPROCOUMON [Concomitant]
     Active Substance: PHENPROCOUMON
     Dosage: 3 MG BY VALUE
  6. NOVOLIZER FORMOTEROL [Concomitant]
     Dosage: 12 UG, CYCLIC (1-0-1-0)
  7. MIMPARA [Concomitant]
     Active Substance: CINACALCET HYDROCHLORIDE
     Dosage: 30 MG, CYCLIC (1-0-0-0)
  8. DILTIAZEM HCL [Suspect]
     Active Substance: DILTIAZEM HYDROCHLORIDE
     Dosage: 60 MG, CYCLIC (1-0.5-0.5-0)
  9. DIGITOXIN [Suspect]
     Active Substance: DIGITOXIN
     Dosage: 0.7 MG, CYCLIC (1-0-0-0 )
  10. CALCET [CALCIUM ACETATE] [Concomitant]
     Dosage: 950 MG, CYCLIC ( 1-2-2-0  )
  11. IPRAMOL [Concomitant]
     Active Substance: ALBUTEROL SULFATE\IPRATROPIUM BROMIDE
     Dosage: UNK UNK, CYCLIC (0.5|2.5 MG, 6X)
  12. NALOXONE;TILIDINE [Concomitant]
     Active Substance: NALOXONE HYDROCHLORIDE\TILIDINE HYDROCHLORIDE
     Dosage: UNK UNK, AS NEEDED 8|100 MG
  13. COLCHICUM [Suspect]
     Active Substance: COLCHICINE
     Dosage: UNK MG
     Dates: end: 20191230
  14. ATORVASTATIN [Concomitant]
     Active Substance: ATORVASTATIN
     Dosage: 40 MG, CYCLIC (0-0-0.5-0)
  15. LEVOTHYROXINE SODIUM. [Concomitant]
     Active Substance: LEVOTHYROXINE SODIUM
     Dosage: 100 UG, CYCLIC (1-0-0-0)

REACTIONS (2)
  - Visual impairment [Unknown]
  - Dizziness [Unknown]
